FAERS Safety Report 7213537-7 (Version None)
Quarter: 2011Q1

REPORT INFORMATION
  Report Type: 
  Country: None (occurrence: None)
  Receive Date: 20110106
  Receipt Date: 20110104
  Transmission Date: 20110831
  Serious: Yes (Other)
  Sender: FDA-Public Use
  Company Number: US-PFIZER INC-2011001682

PATIENT
  Sex: Female
  Weight: 54.422 kg

DRUGS (3)
  1. OXAPROZIN [Suspect]
     Indication: OSTEOPOROSIS
     Dosage: 600 MG, 2X/DAY
     Route: 048
     Dates: start: 20101209, end: 20101221
  2. CYMBALTA [Concomitant]
     Indication: FIBROMYALGIA
     Dosage: 90 MG, 1X/DAY
     Route: 048
  3. OXAPROZIN [Suspect]
     Indication: ARTHRITIS

REACTIONS (12)
  - FATIGUE [None]
  - HEADACHE [None]
  - NAUSEA [None]
  - BACK PAIN [None]
  - VISUAL IMPAIRMENT [None]
  - TINNITUS [None]
  - GLOSSODYNIA [None]
  - TREMOR [None]
  - DIZZINESS [None]
  - PYREXIA [None]
  - BLOOD URINE PRESENT [None]
  - ABDOMINAL PAIN [None]
